FAERS Safety Report 7494265-X (Version None)
Quarter: 2011Q2

REPORT INFORMATION
  Report Type: 
  Country: None (occurrence: None)
  Receive Date: 20110520
  Receipt Date: 20110511
  Transmission Date: 20111010
  Serious: Yes (Hospitalization, Other)
  Sender: FDA-Public Use
  Company Number: US-ASTRAZENECA-2011SE24659

PATIENT
  Age: 60 Year
  Sex: Female

DRUGS (1)
  1. NEXIUM [Suspect]
     Route: 048

REACTIONS (8)
  - SCOLIOSIS [None]
  - JOINT DISLOCATION [None]
  - MALAISE [None]
  - SHOULDER ARTHROPLASTY [None]
  - HAND FRACTURE [None]
  - ULCER [None]
  - SPINAL OPERATION [None]
  - MENISCUS LESION [None]
